FAERS Safety Report 6715193-0 (Version None)
Quarter: 2010Q2

REPORT INFORMATION
  Report Type: 
  Country: None (occurrence: None)
  Receive Date: 20100507
  Receipt Date: 20100505
  Transmission Date: 20101027
  Serious: Yes (Hospitalization, Other)
  Sender: FDA-Public Use
  Company Number: CHPA2010GB07941

PATIENT
  Age: 68 Year
  Sex: Female
  Weight: 72 kg

DRUGS (8)
  1. HYOSCINE HYDROBROMIDE (NCH) [Suspect]
     Indication: INCREASED BRONCHIAL SECRETION
     Dosage: 1 DF, Q72H
     Route: 062
     Dates: start: 20100409, end: 20100421
  2. AMLODIPINE [Concomitant]
  3. LANSOPRAZOLE [Concomitant]
  4. METFORMIN [Concomitant]
  5. ORAMORPH SR [Concomitant]
  6. ACETAMINOPHEN [Concomitant]
  7. RAMIPRIL [Concomitant]
  8. SUCRALFATE [Concomitant]

REACTIONS (5)
  - ANGLE CLOSURE GLAUCOMA [None]
  - EYE PAIN [None]
  - TRABECULECTOMY [None]
  - VISION BLURRED [None]
  - VOMITING [None]
